FAERS Safety Report 4814104-2 (Version None)
Quarter: 2005Q4

REPORT INFORMATION
  Report Type: 
  Country: None (occurrence: None)
  Receive Date: 20051028
  Receipt Date: 20050629
  Transmission Date: 20060501
  Serious: No
  Sender: FDA-Public Use
  Company Number: US-GLAXOSMITHKLINE-A0564606A

PATIENT
  Age: 74 Year
  Sex: Male
  Weight: 78.2 kg

DRUGS (9)
  1. ADVAIR DISKUS 100/50 [Suspect]
     Indication: DRUG USE FOR UNKNOWN INDICATION
     Route: 055
  2. METOPROLOL [Concomitant]
  3. LASIX [Concomitant]
  4. POTASSIUM [Concomitant]
  5. LIPITOR [Concomitant]
  6. PLAVIX [Concomitant]
  7. LISINOPRIL [Concomitant]
  8. MOBIC [Concomitant]
  9. ASPIRIN [Concomitant]

REACTIONS (3)
  - DYSPHONIA [None]
  - LARYNGEAL DISORDER [None]
  - LARYNGITIS [None]
